FAERS Safety Report 16351625 (Version 1)
Quarter: 2019Q2

REPORT INFORMATION
  Report Type: Spontaneous
  Country: US (occurrence: US)
  Receive Date: 20190524
  Receipt Date: 20190524
  Transmission Date: 20190711
  Serious: Yes (Hospitalization, Other)
  Sender: FDA-Public Use
  Company Number: US-ABBVIE-19S-163-2792563-00

PATIENT
  Age: 69 Year
  Sex: Female

DRUGS (1)
  1. CREON [Suspect]
     Active Substance: PANCRELIPASE AMYLASE\PANCRELIPASE LIPASE\PANCRELIPASE PROTEASE
     Indication: PRODUCT USED FOR UNKNOWN INDICATION
     Route: 048

REACTIONS (15)
  - Coronary artery disease [Recovered/Resolved]
  - Gastrooesophageal reflux disease [Unknown]
  - Thyroid mass [Unknown]
  - Peripheral sensory neuropathy [Unknown]
  - Aortic arteriosclerosis [Unknown]
  - Chronic obstructive pulmonary disease [Unknown]
  - Osteoporosis [Unknown]
  - Anxiety [Unknown]
  - Sleep apnoea syndrome [Unknown]
  - Carotid artery stenosis [Unknown]
  - Bronchitis chronic [Unknown]
  - Supportive care [Unknown]
  - Restrictive pulmonary disease [Unknown]
  - Arteriosclerosis [Unknown]
  - Osteoarthritis [Unknown]

NARRATIVE: CASE EVENT DATE: 2010
